FAERS Safety Report 6396789-5 (Version None)
Quarter: 2009Q4

REPORT INFORMATION
  Report Type: 
  Country: None (occurrence: None)
  Receive Date: 20091012
  Receipt Date: 20090727
  Transmission Date: 20100525
  Serious: No
  Sender: FDA-Public Use
  Company Number: US-ASTRAZENECA-2009SE06072

PATIENT
  Age: 54 Year
  Sex: Male
  Weight: 71.8 kg

DRUGS (5)
  1. SYMBICORT [Suspect]
     Indication: PROPHYLAXIS
     Route: 055
     Dates: start: 20080901, end: 20090501
  2. RHINOCORT [Concomitant]
     Route: 045
  3. LODRANE [Concomitant]
  4. AMLODIPINE [Concomitant]
  5. TRIAMTERENE [Concomitant]

REACTIONS (1)
  - DYSPNOEA [None]
